FAERS Safety Report 12662672 (Version 1)
Quarter: 2016Q3

REPORT INFORMATION
  Report Type: Report from Study
  Country: MX (occurrence: MX)
  Receive Date: 20160818
  Receipt Date: 20160818
  Transmission Date: 20161109
  Serious: Yes (Other)
  Sender: FDA-Public Use
  Company Number: MX-UCBSA-2016031271

PATIENT
  Sex: Female

DRUGS (4)
  1. LEVETIRACETAM. [Suspect]
     Active Substance: LEVETIRACETAM
     Indication: SEIZURE
     Dosage: UNK
     Dates: start: 1994
  2. LEVETIRACETAM. [Suspect]
     Active Substance: LEVETIRACETAM
     Dosage: 2 SHOTS IN 250ML OF PHYSIOLOGICAL SOLUTION
     Route: 042
     Dates: end: 201607
  3. LEVETIRACETAM. [Suspect]
     Active Substance: LEVETIRACETAM
     Dosage: 1 G, 3X/DAY (TID)
     Dates: start: 2011, end: 201607
  4. CARBAMAZEPIN [Suspect]
     Active Substance: CARBAMAZEPINE
     Indication: SEIZURE
     Dosage: 200MG (1 TABLET AT MORNING, 1 TABLET AT AFTERNOON AND 2 TABLETS AT NIGHT, 3X/DAY (TID)
     Dates: start: 1981

REACTIONS (3)
  - Seizure [Not Recovered/Not Resolved]
  - Skin papilloma [Recovered/Resolved]
  - Intentional product misuse [Unknown]

NARRATIVE: CASE EVENT DATE: 2011
